FAERS Safety Report 10549712 (Version 2)
Quarter: 2015Q1

REPORT INFORMATION
  Report Type: Report from Study
  Country: US (occurrence: US)
  Receive Date: 20141028
  Receipt Date: 20150211
  Transmission Date: 20150720
  Serious: Yes (Hospitalization)
  Sender: FDA-Public Use
  Company Number: US-PURDUE-USA-2014-0118340

PATIENT
  Age: 69 Year
  Sex: Female

DRUGS (3)
  1. OXYCONTIN [Suspect]
     Active Substance: OXYCODONE HYDROCHLORIDE
     Dosage: 160 MG, BID
     Route: 048
     Dates: start: 20140917
  2. OXYCONTIN [Suspect]
     Active Substance: OXYCODONE HYDROCHLORIDE
     Indication: SPINAL COLUMN STENOSIS
     Dosage: 160 MG, BID
     Route: 048
     Dates: end: 201501
  3. OXYCONTIN [Suspect]
     Active Substance: OXYCODONE HYDROCHLORIDE
     Dosage: UNK
     Route: 048
     Dates: start: 201208

REACTIONS (8)
  - Road traffic accident [Unknown]
  - Ankle fracture [Unknown]
  - Weight decreased [Unknown]
  - Feeding disorder [Unknown]
  - Pain [Unknown]
  - Spinal fracture [Unknown]
  - Skeletal injury [Unknown]
  - Abasia [Unknown]

NARRATIVE: CASE EVENT DATE: 20140727
